FAERS Safety Report 5879945-1 (Version None)
Quarter: 2008Q3

REPORT INFORMATION
  Report Type: 
  Country: None (occurrence: None)
  Receive Date: 20080912
  Receipt Date: 20080905
  Transmission Date: 20090109
  Serious: Yes (Death, Hospitalization, Disabling)
  Sender: FDA-Public Use
  Company Number: FR-WYE-G02115908

PATIENT
  Sex: Male

DRUGS (16)
  1. METHOTREXATE [Suspect]
     Indication: PROPHYLAXIS AGAINST GRAFT VERSUS HOST DISEASE
     Dosage: 20 MG TOTAL WEEKLY
     Route: 048
     Dates: start: 20050801
  2. SANDOGLOBULIN [Suspect]
     Indication: LYMPHOPENIA
     Route: 042
     Dates: start: 20061201
  3. PROTOPIC [Suspect]
     Indication: CHRONIC GRAFT VERSUS HOST DISEASE
     Dosage: UNKNOWN
     Route: 061
     Dates: start: 20070701
  4. PENTACARINAT [Suspect]
     Dosage: UNKNOWN
     Dates: start: 20070401
  5. MYFORTIC [Suspect]
     Indication: CHRONIC GRAFT VERSUS HOST DISEASE
     Route: 048
     Dates: start: 20070115
  6. MOPRAL [Concomitant]
     Dosage: UNKNOWN
     Route: 048
     Dates: start: 20050901
  7. ZELITREX [Concomitant]
     Dosage: UNKNOWN
     Route: 048
     Dates: start: 20051201
  8. CLARITHROMYCIN [Concomitant]
     Dosage: UNKNOWN
     Route: 048
     Dates: start: 20070101
  9. CARDENSIEL [Concomitant]
     Route: 048
     Dates: start: 20070601
  10. URSOLVAN-200 [Concomitant]
     Dosage: UNKNOWN
     Dates: start: 20070101
  11. BUCCOBET [Concomitant]
     Dosage: UNKNOWN
     Route: 048
     Dates: start: 20070701
  12. LASIX [Concomitant]
     Dosage: UNKNOWN
     Dates: start: 20070701, end: 20070801
  13. ALDACTONE [Concomitant]
     Dosage: UNKNOWN
     Dates: start: 20070701, end: 20070801
  14. BISOPROLOL FUMARATE [Concomitant]
     Dosage: UNKNOWN
     Route: 048
     Dates: end: 20070801
  15. BISOPROLOL FUMARATE [Concomitant]
     Dosage: 10 MG TOTAL DAILY
     Route: 048
     Dates: start: 20070801
  16. RAPAMUNE [Suspect]
     Indication: CHRONIC GRAFT VERSUS HOST DISEASE
     Dosage: UNKNOWN
     Route: 048
     Dates: start: 20080402

REACTIONS (7)
  - ACUTE GRAFT VERSUS HOST DISEASE [None]
  - CARDIAC ARREST [None]
  - CHRONIC GRAFT VERSUS HOST DISEASE [None]
  - ELECTROMECHANICAL DISSOCIATION [None]
  - MITRAL VALVE INCOMPETENCE [None]
  - MYOCARDIAL INFARCTION [None]
  - PERICARDIAL EFFUSION [None]
